FAERS Safety Report 9851111 (Version 1)
Quarter: 2014Q1

REPORT INFORMATION
  Report Type: Spontaneous
  Country: US (occurrence: US)
  Receive Date: 20140128
  Receipt Date: 20140128
  Transmission Date: 20141002
  Serious: Yes (Death, Hospitalization)
  Sender: FDA-Public Use
  Company Number: US-TEVA-458633USA

PATIENT
  Age: 61 Year
  Sex: Female
  Weight: 66.28 kg

DRUGS (9)
  1. FENTORA [Suspect]
     Indication: BREAKTHROUGH PAIN
     Route: 002
     Dates: end: 20140102
  2. OXYCONTIN [Concomitant]
     Indication: PAIN
     Dosage: 20 MILLIGRAM DAILY;
     Route: 048
  3. OXYCODONE [Concomitant]
     Indication: PAIN
     Route: 048
  4. LORAZEPAM [Concomitant]
     Indication: ANXIETY
     Route: 048
  5. LORAZEPAM [Concomitant]
     Indication: NAUSEA
  6. LEVOTHYROXINE [Concomitant]
     Indication: HYPOTHYROIDISM
     Dosage: 100 MICROGRAM DAILY;
     Route: 048
  7. VITAMIN D3 [Concomitant]
     Indication: NUTRITIONAL SUPPLEMENTATION
  8. FLONASE [Concomitant]
     Indication: HYPERSENSITIVITY
  9. TRIAMCINOLONE [Concomitant]
     Indication: PRURITUS

REACTIONS (2)
  - Respiratory failure [Fatal]
  - Encephalopathy [Fatal]
